FAERS Safety Report 8351385-5 (Version None)
Quarter: 2012Q2

REPORT INFORMATION
  Report Type: 
  Country: None (occurrence: None)
  Receive Date: 20120510
  Receipt Date: 20120504
  Transmission Date: 20120825
  Serious: Yes (Hospitalization)
  Sender: FDA-Public Use
  Company Number: US-MERCK-1103USA00914

PATIENT
  Age: 51 Year
  Sex: Female
  Weight: 63 kg

DRUGS (3)
  1. FOSAMAX [Suspect]
     Route: 048
     Dates: start: 20000101, end: 20080501
  2. FOSAMAX [Suspect]
     Route: 048
     Dates: start: 20080101, end: 20100301
  3. FOSAMAX [Suspect]
     Indication: OSTEOPOROSIS
     Route: 048
     Dates: start: 19950101, end: 20000101

REACTIONS (27)
  - TENSION HEADACHE [None]
  - TOOTH EXTRACTION [None]
  - BLOOD PRESSURE INADEQUATELY CONTROLLED [None]
  - GASTRITIS [None]
  - LOOSE TOOTH [None]
  - HORMONE LEVEL ABNORMAL [None]
  - GASTRIC POLYPS [None]
  - HIATUS HERNIA [None]
  - PALPITATIONS [None]
  - FEMUR FRACTURE [None]
  - SPINAL DISORDER [None]
  - DRUG HYPERSENSITIVITY [None]
  - PAIN IN EXTREMITY [None]
  - NECK PAIN [None]
  - HYPERCHOLESTEROLAEMIA [None]
  - VITAMIN D DEFICIENCY [None]
  - STRABISMUS [None]
  - HEADACHE [None]
  - ANAEMIA POSTOPERATIVE [None]
  - FALL [None]
  - HEART RATE INCREASED [None]
  - HYPERTENSION [None]
  - TOOTHACHE [None]
  - BREAST CANCER [None]
  - LYMPHADENOPATHY [None]
  - DYSPEPSIA [None]
  - ANXIETY [None]
